FAERS Safety Report 11605975 (Version 1)
Quarter: 2015Q4

REPORT INFORMATION
  Report Type: Spontaneous
  Country: US (occurrence: US)
  Receive Date: 20151007
  Receipt Date: 20151007
  Transmission Date: 20160304
  Serious: Yes (Other)
  Sender: FDA-Public Use
  Company Number: US-AMGEN-USASP2015104129

PATIENT

DRUGS (1)
  1. XGEVA [Suspect]
     Active Substance: DENOSUMAB
     Indication: PRODUCT USED FOR UNKNOWN INDICATION
     Dosage: 120 MG, ON DAY 1,8,15, 29 AND EVERY 4 WEEKS THEREAFTER
     Route: 058

REACTIONS (8)
  - Neuropathy peripheral [Unknown]
  - Osteonecrosis of jaw [Recovered/Resolved]
  - Myalgia [Unknown]
  - Infection [Unknown]
  - Cellulitis [Unknown]
  - Eczema [Unknown]
  - Atypical femur fracture [Unknown]
  - Toothache [Unknown]
